FAERS Safety Report 4896638-8 (Version None)
Quarter: 2006Q1

REPORT INFORMATION
  Report Type: 
  Country: None (occurrence: None)
  Receive Date: 20060131
  Receipt Date: 20060116
  Transmission Date: 20060701
  Serious: Yes (Other)
  Sender: FDA-Public Use
  Company Number: SE-ROCHE-432298

PATIENT
  Age: 27 Year
  Sex: Male

DRUGS (1)
  1. ROACCUTAN [Suspect]
     Route: 065

REACTIONS (2)
  - DEPRESSION [None]
  - SUICIDAL IDEATION [None]
